FAERS Safety Report 9157100 (Version 2)
Quarter: 2013Q2

REPORT INFORMATION
  Report Type: Spontaneous
  Country: US (occurrence: None)
  Receive Date: 20130212
  Receipt Date: 20130509
  Transmission Date: 20140414
  Serious: Yes (Hospitalization)
  Sender: FDA-Public Use
  Company Number: US-010811

PATIENT
  Age: 76 Year
  Sex: Male

DRUGS (1)
  1. DEGARELIX [Suspect]
     Indication: PRODUCT USED FOR UNKNOWN INDICATION
     Dosage: 240 MG 1X
     Dates: start: 20121024, end: 20121024

REACTIONS (9)
  - Herpes simplex meningoencephalitis [None]
  - Tremor [None]
  - Pyrexia [None]
  - Lethargy [None]
  - Headache [None]
  - Confusional state [None]
  - Decreased appetite [None]
  - Dementia [None]
  - Cystitis [None]
